FAERS Safety Report 11363243 (Version 3)
Quarter: 2016Q1

REPORT INFORMATION
  Report Type: Spontaneous
  Country: US (occurrence: US)
  Receive Date: 20150811
  Receipt Date: 20160115
  Transmission Date: 20160525
  Serious: Yes (Death, Hospitalization)
  Sender: FDA-Public Use
  Company Number: US-ROCHE-ITM201504IM013787

PATIENT
  Sex: Male
  Weight: 66.28 kg

DRUGS (1)
  1. ESBRIET [Suspect]
     Active Substance: PIRFENIDONE
     Indication: IDIOPATHIC PULMONARY FIBROSIS
     Dosage: 3 CAPS PO TID
     Route: 048
     Dates: start: 20150409

REACTIONS (4)
  - Dry mouth [Unknown]
  - Death [Fatal]
  - Anaemia [Unknown]
  - Gastrooesophageal reflux disease [Unknown]
